FAERS Safety Report 14108542 (Version 1)
Quarter: 2017Q4

REPORT INFORMATION
  Report Type: Spontaneous
  Country: None (occurrence: US)
  Receive Date: 20171019
  Receipt Date: 20171019
  Transmission Date: 20180321
  Serious: Yes (Hospitalization)
  Sender: FDA-Public Use
  Company Number: US-JIANGSU HENGRUI MEDICINE CO., LTD.-2030765

PATIENT
  Age: 65 Year
  Sex: Female
  Weight: 79.09 kg

DRUGS (5)
  1. ALOXI [Concomitant]
     Active Substance: PALONOSETRON HYDROCHLORIDE
     Route: 042
  2. DECADRON [Concomitant]
     Active Substance: DEXAMETHASONE
     Route: 042
  3. PROZAC [Concomitant]
     Active Substance: FLUOXETINE HYDROCHLORIDE
  4. CYCLOPHOSPHAMIDE. [Suspect]
     Active Substance: CYCLOPHOSPHAMIDE
     Indication: BREAST CANCER
     Dates: start: 20170927
  5. VARUBI [Concomitant]
     Active Substance: ROLAPITANT
     Route: 048

REACTIONS (3)
  - Tongue biting [None]
  - Seizure [Recovered/Resolved]
  - Hyponatraemia [None]

NARRATIVE: CASE EVENT DATE: 20170928
